FAERS Safety Report 17731272 (Version 1)
Quarter: 2020Q2

REPORT INFORMATION
  Report Type: Spontaneous
  Country: US (occurrence: US)
  Receive Date: 20200430
  Receipt Date: 20200430
  Transmission Date: 20200714
  Serious: No
  Sender: FDA-Public Use
  Company Number: US-009507513-2004USA008734

PATIENT
  Sex: Male

DRUGS (5)
  1. ISOSORBIDE MONONITRATE. [Concomitant]
     Active Substance: ISOSORBIDE MONONITRATE
  2. AMANTADINE. [Interacting]
     Active Substance: AMANTADINE HYDROCHLORIDE
     Indication: DYSKINESIA
     Dosage: EXTENDED RELEASE 137MG CAPSULES, 137 MG,1 X/DAY AT BEDTIME
     Dates: start: 20200129, end: 2020
  3. SINEMET [Suspect]
     Active Substance: CARBIDOPA\LEVODOPA
     Indication: PARKINSON^S DISEASE
     Dosage: IN THE MORNING
     Route: 048
  4. AMANTADINE. [Interacting]
     Active Substance: AMANTADINE HYDROCHLORIDE
     Dosage: 137 MG, EVERY 48 HOURS
     Dates: start: 2020, end: 2020
  5. CLONAZEPAM. [Concomitant]
     Active Substance: CLONAZEPAM

REACTIONS (4)
  - Vomiting [Not Recovered/Not Resolved]
  - Vomiting [Unknown]
  - Drug interaction [Unknown]
  - Nausea [Unknown]

NARRATIVE: CASE EVENT DATE: 2020
